FAERS Safety Report 17346392 (Version 1)
Quarter: 2020Q1

REPORT INFORMATION
  Report Type: Spontaneous
  Country: GB (occurrence: GB)
  Receive Date: 20200130
  Receipt Date: 20200130
  Transmission Date: 20200409
  Serious: Yes (Other)
  Sender: FDA-Public Use
  Company Number: NVSC2020GB020705

PATIENT
  Age: 67 Year
  Sex: Female

DRUGS (2)
  1. KELP [Concomitant]
     Active Substance: KELP
     Indication: PRODUCT USED FOR UNKNOWN INDICATION
     Route: 065
  2. TROPICAMIDE. [Suspect]
     Active Substance: TROPICAMIDE
     Indication: PRODUCT USED FOR UNKNOWN INDICATION
     Dosage: INSTILLED INEACH EYE (1/12 MILLILITRE)
     Route: 047

REACTIONS (2)
  - Sleep disorder [Not Recovered/Not Resolved]
  - Asthenopia [Not Recovered/Not Resolved]
